FAERS Safety Report 16991534 (Version 1)
Quarter: 2019Q4

REPORT INFORMATION
  Report Type: Report from Study
  Country: US (occurrence: US)
  Receive Date: 20191104
  Receipt Date: 20191104
  Transmission Date: 20200122
  Serious: Yes (Hospitalization)
  Sender: FDA-Public Use
  Company Number: US-GILEAD-2019-0432792

PATIENT
  Age: 12 Year
  Sex: Female

DRUGS (13)
  1. LAMOTRIGINE. [Concomitant]
     Active Substance: LAMOTRIGINE
  2. LORAZEPAM. [Concomitant]
     Active Substance: LORAZEPAM
  3. FLUOXETINE [Concomitant]
     Active Substance: FLUOXETINE HYDROCHLORIDE
  4. XIFAXAN [Concomitant]
     Active Substance: RIFAXIMIN
  5. AZTREONAM LYSINE [Suspect]
     Active Substance: AZTREONAM LYSINE
     Indication: CYSTIC FIBROSIS
     Dosage: 75 MG, TID 28 DAY ON, 28 DAYS OFF
     Route: 055
     Dates: start: 20190607
  6. MEPHYTON [Concomitant]
     Active Substance: PHYTONADIONE
  7. MONTELUKAST [Concomitant]
     Active Substance: MONTELUKAST SODIUM
  8. OLANZAPINE. [Concomitant]
     Active Substance: OLANZAPINE
  9. PENTASA [Concomitant]
     Active Substance: MESALAMINE
  10. POLYETH GLYC POW [Concomitant]
  11. LANSOPRAZOLE. [Concomitant]
     Active Substance: LANSOPRAZOLE
  12. AZTREONAM LYSINE [Suspect]
     Active Substance: AZTREONAM LYSINE
     Dosage: 75 MG, TID 28 DAY ON, 28 DAYS OFF
     Route: 055
     Dates: start: 20190809
  13. MIRTAZAPINE. [Concomitant]
     Active Substance: MIRTAZAPINE

REACTIONS (2)
  - Gastrointestinal infection [Unknown]
  - Cystic fibrosis respiratory infection suppression [Unknown]

NARRATIVE: CASE EVENT DATE: 20190827
